FAERS Safety Report 17809397 (Version 1)
Quarter: 2020Q2

REPORT INFORMATION
  Report Type: Spontaneous
  Country: CA (occurrence: CA)
  Receive Date: 20200521
  Receipt Date: 20200521
  Transmission Date: 20200714
  Serious: Yes (Hospitalization, Other)
  Sender: FDA-Public Use
  Company Number: CA-AUROBINDO-AUR-APL-2020-025045

PATIENT
  Age: 55 Year
  Sex: Male

DRUGS (5)
  1. BUSULFAN. [Suspect]
     Active Substance: BUSULFAN
     Indication: PLASMA CELL MYELOMA
     Dosage: 257.25 MILLIGRAM, ONCE A DAY
     Route: 041
  2. MELPHALAN HCL [Suspect]
     Active Substance: MELPHALAN HYDROCHLORIDE
     Indication: PLASMA CELL MYELOMA
     Dosage: 284.2 MILLIGRAM, ONCE A DAY
     Route: 041
  3. BORTEZOMIB. [Suspect]
     Active Substance: BORTEZOMIB
     Indication: PLASMA CELL MYELOMA
     Dosage: UNK
     Route: 065
  4. REVLIMID [Suspect]
     Active Substance: LENALIDOMIDE
     Indication: PLASMA CELL MYELOMA
     Dosage: 10 MILLIGRAM, ONCE A DAY
     Route: 048
  5. CYCLOPHOSPHAMIDE. [Suspect]
     Active Substance: CYCLOPHOSPHAMIDE
     Indication: PLASMA CELL MYELOMA
     Dosage: UNK
     Route: 065

REACTIONS (1)
  - Pneumonia [Recovered/Resolved]
